FAERS Safety Report 8769947 (Version 2)
Quarter: 2013Q1

REPORT INFORMATION
  Report Type: Spontaneous
  Country: IT (occurrence: IT)
  Receive Date: 20120906
  Receipt Date: 20130326
  Transmission Date: 20140127
  Serious: Yes (Hospitalization, Other)
  Sender: FDA-Public Use
  Company Number: IT-ELI_LILLY_AND_COMPANY-IT201209000488

PATIENT
  Age: 59 Year
  Sex: Male
  Weight: 89 kg

DRUGS (13)
  1. EFIENT [Suspect]
     Indication: ANGIOGRAM
     Dosage: 10 MG, QD
     Route: 048
     Dates: start: 20120623, end: 20120704
  2. REOPRO [Concomitant]
     Indication: ACUTE MYOCARDIAL INFARCTION
     Dosage: .25 MG/KG, UNK
     Route: 042
     Dates: start: 20120623, end: 20120623
  3. CONTRAST MEDIA [Concomitant]
     Indication: ANGIOGRAM
     Dosage: 20 ML, SINGLE
     Route: 013
     Dates: start: 20120628, end: 20120628
  4. ENOXAPARIN [Concomitant]
     Indication: ACUTE MYOCARDIAL INFARCTION
     Dosage: 1 DF, QD
     Route: 058
     Dates: start: 20120624, end: 20120702
  5. ASPIRIN [Concomitant]
     Indication: ACUTE MYOCARDIAL INFARCTION
     Dosage: 100 MG, UNK
     Route: 048
  6. ENALAPRIL MALEATE [Concomitant]
     Dosage: 5 MG, UNK
     Route: 048
  7. SPIRONOLACTONE [Concomitant]
     Dosage: 25 MG, UNK
     Route: 048
  8. DOPAMINE HYDROCHLORIDE [Concomitant]
  9. PANTOPRAZOLE [Concomitant]
     Dosage: 40 MG, UNK
     Route: 042
  10. DIAZEPAM [Concomitant]
     Dosage: 10 GTT, UNK
     Route: 048
  11. ATORVASTATIN [Concomitant]
     Dosage: 20 MG, UNK
     Route: 048
  12. IOMEPROL [Concomitant]
     Indication: ANGIOGRAM
     Dosage: 200 ML, UNK
     Route: 013
     Dates: start: 20120623, end: 20120623
  13. IOMEPROL [Concomitant]
     Dosage: 20 ML, UNK
     Route: 013
     Dates: start: 20120628, end: 20120628

REACTIONS (3)
  - Chest pain [Unknown]
  - Thrombocytopenia [Recovered/Resolved]
  - Erythema [Recovered/Resolved]
